FAERS Safety Report 25984041 (Version 1)
Quarter: 2025Q4

REPORT INFORMATION
  Report Type: Spontaneous
  Country: EU (occurrence: EU)
  Receive Date: 20251031
  Receipt Date: 20251031
  Transmission Date: 20260117
  Serious: Yes (Hospitalization)
  Sender: BRACCO
  Company Number: None

PATIENT
  Age: 53 Year
  Sex: Male

DRUGS (1)
  1. VUEWAY [Suspect]
     Active Substance: GADOPICLENOL
     Indication: Magnetic resonance imaging
     Dosage: 8 ML, SINGLE DOSE
     Dates: start: 20251006, end: 20251006

REACTIONS (5)
  - Dysphagia [Unknown]
  - Skin tightness [Unknown]
  - Presyncope [Unknown]
  - Cold sweat [Unknown]
  - Throat tightness [Unknown]

NARRATIVE: CASE EVENT DATE: 20251006
